FAERS Safety Report 13151725 (Version 2)
Quarter: 2017Q2

REPORT INFORMATION
  Report Type: Report from Study
  Country: US (occurrence: US)
  Receive Date: 20170125
  Receipt Date: 20170419
  Transmission Date: 20170830
  Serious: Yes (Hospitalization, Other)
  Sender: FDA-Public Use
  Company Number: US-JNJFOC-20161221755

PATIENT
  Age: 80 Year
  Sex: Female

DRUGS (1)
  1. IMBRUVICA [Suspect]
     Active Substance: IBRUTINIB
     Indication: CHRONIC LYMPHOCYTIC LEUKAEMIA
     Route: 048
     Dates: start: 20161213

REACTIONS (8)
  - Hypotension [Recovered/Resolved]
  - Off label use [Recovered/Resolved]
  - Faeces discoloured [Not Recovered/Not Resolved]
  - Product use issue [Recovered/Resolved]
  - Pleural effusion [Not Recovered/Not Resolved]
  - Chronic obstructive pulmonary disease [Unknown]
  - Gastric haemorrhage [Not Recovered/Not Resolved]
  - Dyspnoea [Not Recovered/Not Resolved]

NARRATIVE: CASE EVENT DATE: 20161213
